FAERS Safety Report 18466474 (Version 1)
Quarter: 2020Q4

REPORT INFORMATION
  Report Type: Spontaneous
  Country: FR (occurrence: FR)
  Receive Date: 20201104
  Receipt Date: 20201104
  Transmission Date: 20210114
  Serious: Yes (Hospitalization)
  Sender: FDA-Public Use
  Company Number: FR-009507513-2011FRA001072

PATIENT
  Age: 65 Year
  Sex: Female

DRUGS (1)
  1. KEYTRUDA [Suspect]
     Active Substance: PEMBROLIZUMAB
     Indication: NODULAR LYMPHOCYTE PREDOMINANT HODGKIN LYMPHOMA
     Dosage: 1 DOSAGE FORM, CYCLICAL
     Route: 041
     Dates: start: 20170915

REACTIONS (1)
  - Cortisol decreased [Not Recovered/Not Resolved]

NARRATIVE: CASE EVENT DATE: 20200924
